FAERS Safety Report 4909105-X (Version None)
Quarter: 2006Q1

REPORT INFORMATION
  Report Type: 
  Country: None (occurrence: None)
  Receive Date: 20060208
  Receipt Date: 20060208
  Transmission Date: 20060701
  Serious: Yes (Other)
  Sender: FDA-Public Use
  Company Number: None

PATIENT
  Age: 45 Year
  Sex: Female
  Weight: 61.2356 kg

DRUGS (2)
  1. RISPERDAL [Suspect]
     Indication: ANXIETY
     Dosage: 1 MG TWICE DAILY ORALLY
     Route: 048
     Dates: start: 20031117, end: 20051217
  2. WELLBUTRIN [Concomitant]

REACTIONS (8)
  - ALOPECIA [None]
  - BALANCE DISORDER [None]
  - CHEST PAIN [None]
  - DIZZINESS [None]
  - FATIGUE [None]
  - HEADACHE [None]
  - TINNITUS [None]
  - VISUAL DISTURBANCE [None]
